FAERS Safety Report 8849978 (Version 1)
Quarter: 2012Q4

REPORT INFORMATION
  Report Type: 
  Country: VE (occurrence: VE)
  Receive Date: 20121019
  Receipt Date: 20121019
  Transmission Date: 20130627
  Serious: Yes (Death)
  Sender: FDA-Public Use
  Company Number: VE-B.I. PHARMACEUTICALS,INC./RIDGEFIELD-2012-RA-00305RA

PATIENT
  Age: 75 Year
  Sex: Female
  Weight: 72 kg

DRUGS (4)
  1. PRADAXA [Suspect]
     Indication: ATRIAL FIBRILLATION
     Dosage: 110 mg
     Route: 048
     Dates: start: 201111, end: 201205
  2. COUMADIN [Concomitant]
     Indication: ATRIAL FIBRILLATION
  3. MANIDON RETARD [Concomitant]
  4. COVERSYL [Concomitant]
     Indication: HYPERTENSION

REACTIONS (1)
  - Haemorrhagic stroke [Fatal]
